FAERS Safety Report 16369890 (Version 1)
Quarter: 2019Q2

REPORT INFORMATION
  Report Type: Spontaneous
  Country: CO (occurrence: CO)
  Receive Date: 20190530
  Receipt Date: 20190530
  Transmission Date: 20190711
  Serious: Yes (Hospitalization)
  Sender: FDA-Public Use
  Company Number: CO-TEVA-2019-CO-1057456

PATIENT
  Sex: Male

DRUGS (1)
  1. MITRUL [Suspect]
     Active Substance: CYCLOBENZAPRINE
     Indication: BACK PAIN
     Route: 048
     Dates: start: 2019, end: 2019

REACTIONS (4)
  - Ischaemia [Unknown]
  - Dysarthria [Unknown]
  - Hemiplegia [Unknown]
  - Muscular weakness [Unknown]

NARRATIVE: CASE EVENT DATE: 2019
